FAERS Safety Report 5278004-9 (Version None)
Quarter: 2007Q1

REPORT INFORMATION
  Report Type: 
  Country: None (occurrence: None)
  Receive Date: 20070321
  Receipt Date: 20070308
  Transmission Date: 20070707
  Serious: No
  Sender: FDA-Public Use
  Company Number: E3810-00586-SPO-TW

PATIENT
  Age: 33 Year
  Sex: Female

DRUGS (1)
  1. RABEPRAZOLE SODIUM [Suspect]
     Dosage: 20 MG, ORAL
     Route: 048
     Dates: start: 20061211, end: 20070115

REACTIONS (3)
  - ABORTION INDUCED [None]
  - DRUG EXPOSURE DURING PREGNANCY [None]
  - FOETAL HEART RATE ABNORMAL [None]
